FAERS Safety Report 18559747 (Version 1)
Quarter: 2020Q4

REPORT INFORMATION
  Report Type: Spontaneous
  Country: DE (occurrence: DE)
  Receive Date: 20201130
  Receipt Date: 20201130
  Transmission Date: 20210114
  Serious: Yes (Other)
  Sender: FDA-Public Use
  Company Number: DE-PFIZER INC-2020464326

PATIENT
  Sex: Female

DRUGS (8)
  1. SEROQUEL [Suspect]
     Active Substance: QUETIAPINE FUMARATE
     Route: 065
  2. FLUCONAZOLE. [Suspect]
     Active Substance: FLUCONAZOLE
     Route: 065
  3. ERGENYL CHRONO [Suspect]
     Active Substance: VALPROIC ACID
     Route: 065
  4. RISPERDAL [Suspect]
     Active Substance: RISPERIDONE
     Route: 065
  5. LORAZEPAM. [Suspect]
     Active Substance: LORAZEPAM
     Route: 065
  6. OLANZAPINE. [Suspect]
     Active Substance: OLANZAPINE
     Route: 065
  7. SYCREST [Suspect]
     Active Substance: ASENAPINE MALEATE
     Route: 065
  8. HALDOL DECANOATE [Suspect]
     Active Substance: HALOPERIDOL DECANOATE
     Route: 065

REACTIONS (17)
  - Constipation [Not Recovered/Not Resolved]
  - Asthma [Unknown]
  - Generalised oedema [Unknown]
  - Breast pain [Unknown]
  - Weight increased [Not Recovered/Not Resolved]
  - Intestinal obstruction [Not Recovered/Not Resolved]
  - Mental impairment [Unknown]
  - Alopecia [Unknown]
  - Visual acuity reduced [Not Recovered/Not Resolved]
  - Abdominal discomfort [Unknown]
  - Speech disorder [Unknown]
  - Periodontal disease [Unknown]
  - Dizziness [Unknown]
  - Balance disorder [Unknown]
  - Eye pain [Unknown]
  - Gingivitis [Unknown]
  - Fluid retention [Unknown]
